FAERS Safety Report 9840706 (Version 1)
Quarter: 2014Q1

REPORT INFORMATION
  Report Type: Spontaneous
  Country: BR (occurrence: BR)
  Receive Date: 20140124
  Receipt Date: 20140124
  Transmission Date: 20141002
  Serious: Yes (Hospitalization, Other)
  Sender: FDA-Public Use
  Company Number: PHHY2014BR008173

PATIENT
  Age: 65 Year
  Sex: Male
  Weight: 85 kg

DRUGS (3)
  1. TEGRETOL CR [Suspect]
     Indication: EPILEPSY
     Dosage: 2.5 DF, DAILY
     Route: 048
     Dates: start: 1990
  2. TEGRETOL CR [Suspect]
     Dosage: UNK UKN, UNK
     Route: 048
  3. TRILEPTAL / GP 47680 / TRI 476B [Suspect]
     Indication: EPILEPSY
     Dosage: 2 DF, DAILY
     Route: 048

REACTIONS (9)
  - Nervous system disorder [Recovered/Resolved]
  - Depression [Recovering/Resolving]
  - Epilepsy [Recovering/Resolving]
  - Musculoskeletal stiffness [Recovering/Resolving]
  - Loss of consciousness [Recovering/Resolving]
  - Exophthalmos [Recovering/Resolving]
  - Aggression [Recovered/Resolved]
  - Pollakiuria [Recovering/Resolving]
  - Drug ineffective [Unknown]
